FAERS Safety Report 5663815-8 (Version None)
Quarter: 2008Q1

REPORT INFORMATION
  Report Type: 
  Country: None (occurrence: None)
  Receive Date: 20080307
  Receipt Date: 20080212
  Transmission Date: 20080703
  Serious: Yes (Other)
  Sender: FDA-Public Use
  Company Number: 2008005362

PATIENT
  Age: 43 Year
  Sex: Male

DRUGS (3)
  1. CETIRIZINE HCL [Suspect]
     Indication: URTICARIA
     Dosage: 10 MG, ORAL
     Route: 048
     Dates: start: 20071112, end: 20080208
  2. LAFUTIDINE (LAFUTIDINE) [Concomitant]
  3. DOMPERIDONE (DOMPERIDONE) [Concomitant]

REACTIONS (8)
  - ALANINE AMINOTRANSFERASE INCREASED [None]
  - ASPARTATE AMINOTRANSFERASE INCREASED [None]
  - BLOOD ALKALINE PHOSPHATASE INCREASED [None]
  - BLOOD BILIRUBIN INCREASED [None]
  - BLOOD LACTATE DEHYDROGENASE INCREASED [None]
  - FATIGUE [None]
  - HEPATIC FUNCTION ABNORMAL [None]
  - LIVER DISORDER [None]
